FAERS Safety Report 17611840 (Version 6)
Quarter: 2021Q1

REPORT INFORMATION
  Report Type: Spontaneous
  Country: US (occurrence: US)
  Receive Date: 20200401
  Receipt Date: 20210111
  Transmission Date: 20210419
  Serious: Yes (Other)
  Sender: FDA-Public Use
  Company Number: US-PFIZER INC-2020106784

PATIENT
  Age: 71 Year
  Sex: Female

DRUGS (1)
  1. XELJANZ XR [Suspect]
     Active Substance: TOFACITINIB CITRATE
     Indication: RHEUMATOID ARTHRITIS
     Dosage: 11 MG, DAILY
     Route: 048
     Dates: start: 20200201, end: 20201010

REACTIONS (8)
  - Product dose omission in error [Unknown]
  - Somnolence [Unknown]
  - Memory impairment [Unknown]
  - Sinusitis [Unknown]
  - Cough [Unknown]
  - Rheumatoid arthritis [Recovering/Resolving]
  - Hypersomnia [Unknown]
  - Pyrexia [Unknown]

NARRATIVE: CASE EVENT DATE: 202002
